FAERS Safety Report 8321908-0 (Version None)
Quarter: 2012Q2

REPORT INFORMATION
  Report Type: 
  Country: None (occurrence: None)
  Receive Date: 20120430
  Receipt Date: 20091124
  Transmission Date: 20120825
  Serious: No
  Sender: FDA-Public Use
  Company Number: US-TEVA-2009029279

PATIENT
  Sex: Male
  Weight: 124.85 kg

DRUGS (6)
  1. SUBOXONE [Concomitant]
     Indication: SUBSTANCE ABUSE
     Dates: start: 20060101
  2. NUVIGIL [Suspect]
     Indication: SLEEP APNOEA SYNDROME
     Route: 048
     Dates: start: 20091101
  3. ANAFRANIL [Concomitant]
  4. CHEMOTHERAPY [Concomitant]
  5. NUVIGIL [Suspect]
     Dosage: 150 MILLIGRAM;
     Route: 048
     Dates: start: 20090601
  6. NUVIGIL [Suspect]
     Dosage: 250 MILLIGRAM;
     Route: 048
     Dates: start: 20090601

REACTIONS (5)
  - DRUG PRESCRIBING ERROR [None]
  - HAEMORRHAGIC DIATHESIS [None]
  - PAIN [None]
  - DRUG INEFFECTIVE [None]
  - DEPRESSION [None]
